FAERS Safety Report 14122680 (Version 2)
Quarter: 2018Q2

REPORT INFORMATION
  Report Type: Spontaneous
  Country: JP (occurrence: JP)
  Receive Date: 20171025
  Receipt Date: 20180402
  Transmission Date: 20180711
  Serious: Yes (Death, Hospitalization)
  Sender: FDA-Public Use
  Company Number: JP-ELI_LILLY_AND_COMPANY-JP201709005119

PATIENT
  Age: 68 Year
  Sex: Male
  Weight: 53 kg

DRUGS (4)
  1. CYRAMZA [Suspect]
     Active Substance: RAMUCIRUMAB
     Indication: METASTATIC GASTRIC CANCER
     Dosage: 8 MG/KG, UNK
     Route: 041
     Dates: start: 20170822
  2. PACLITAXEL. [Concomitant]
     Active Substance: PACLITAXEL
     Indication: METASTATIC GASTRIC CANCER
     Route: 041
  3. GLACTIV [Concomitant]
     Active Substance: SITAGLIPTIN
     Indication: DIABETES MELLITUS
     Dosage: 100 MG, DAILY
     Route: 065
  4. VOGLIBOSE [Concomitant]
     Active Substance: VOGLIBOSE
     Indication: DIABETES MELLITUS
     Dosage: 0.3 MG, TID
     Route: 065

REACTIONS (3)
  - Metastases to meninges [Fatal]
  - Proteinuria [Not Recovered/Not Resolved]
  - Hypertension [Not Recovered/Not Resolved]

NARRATIVE: CASE EVENT DATE: 20170829
